FAERS Safety Report 7803284-2 (Version None)
Quarter: 2011Q4

REPORT INFORMATION
  Report Type: 
  Country: None (occurrence: None)
  Receive Date: 20111005
  Receipt Date: 20110920
  Transmission Date: 20120403
  Serious: Yes (Other)
  Sender: FDA-Public Use
  Company Number: CIP11000537

PATIENT
  Sex: Female

DRUGS (32)
  1. FOSAMAX [Suspect]
     Indication: OSTEOPOROSIS
     Dosage: 10 MG DAILY, ORAL
     Route: 048
     Dates: start: 19960304, end: 20000901
  2. PREDNISONE TAB [Concomitant]
  3. PREMPHASE (PREMARIN;CYCRIN 14/14) [Concomitant]
  4. AVELOX [Concomitant]
  5. FLONASE [Concomitant]
  6. ACTONEL [Suspect]
     Indication: OSTEOPOROSIS
     Dosage: 10 MG TWICE DAILY, ORAL
     Route: 048
  7. NIFEDIPINE [Concomitant]
  8. BUSPIRONE HCL [Concomitant]
  9. THEOPHYLLINE [Concomitant]
  10. ADVAIR (FLUTICASOEN PROPIONATE, SALMETEROL XINAFOATE) [Concomitant]
  11. NEURONTIN [Concomitant]
  12. MYCELEX [Concomitant]
  13. TYLENOL WITH CODEIN #4 (CODEINE PHOSPHATE, PARACETAMOL) [Concomitant]
  14. ZANTAC [Concomitant]
  15. ACYCLOVIR /00587301/ (ACICLOVIR) [Concomitant]
  16. ACTONEL [Suspect]
     Indication: OSTEOPOROSIS
     Dosage: 5 MG DAILY, ORAL
     Route: 048
     Dates: start: 20000901, end: 20010219
  17. CELEBREX (CELEVOXIB) [Concomitant]
  18. LOPRESSOR HCT (HYDROCHLOROTHIAZIDE, METOPROLOL TARTRATE) [Concomitant]
  19. CALCIUM CARBONATE [Concomitant]
  20. INDAPAMIDE [Concomitant]
  21. POTASSIUM CHLROIDE (POTASSIUM CHLORIDE) [Concomitant]
  22. LEVAQUIN [Concomitant]
  23. FOSAMAX [Suspect]
     Indication: OSTEOPOROSIS
     Dosage: 70 MG WEEKLY, ORAL
     Route: 048
     Dates: start: 20010219, end: 20020423
  24. ALBUTEROL [Concomitant]
  25. QUININE SULFATE (QUININE SULFATE) [Concomitant]
  26. CHEMOTHERAPEUTICALS NOS [Concomitant]
  27. NITROGLYCERIN [Concomitant]
  28. ACTONEL [Suspect]
     Indication: OSTEOPOROSIS
     Dosage: 35 MG WEEKLY, ORAL
     Route: 048
     Dates: start: 20020930, end: 20051219
  29. SINGULAIR [Concomitant]
  30. ATROVENT [Concomitant]
  31. METHOCARBAMOL [Concomitant]
  32. ALLEGRA /01314201/ (FEXOFENADINE) [Concomitant]

REACTIONS (13)
  - PAIN IN EXTREMITY [None]
  - FRACTURE NONUNION [None]
  - GROIN PAIN [None]
  - HIP DEFORMITY [None]
  - ABDOMINAL DISCOMFORT [None]
  - STRESS FRACTURE [None]
  - FEMUR FRACTURE [None]
  - DEVICE FAILURE [None]
  - INCORRECT DOSE ADMINISTERED [None]
  - ARTHRALGIA [None]
  - BONE DISORDER [None]
  - PROCEDURAL PAIN [None]
  - MASS [None]
